FAERS Safety Report 21883772 (Version 1)
Quarter: 2023Q1

REPORT INFORMATION
  Report Type: Spontaneous
  Country: US (occurrence: None)
  Receive Date: 20230118
  Receipt Date: 20230118
  Transmission Date: 20230418
  Serious: Yes (Hospitalization)
  Sender: FDA-Public Use
  Company Number: None

PATIENT
  Age: 70 Year
  Sex: Female
  Weight: 78.93 kg

DRUGS (15)
  1. FULVESTRANT [Suspect]
     Active Substance: FULVESTRANT
     Indication: Breast cancer female
     Dosage: FREQUENCY : MONTHLY;?
     Route: 030
  2. VERZENIO [Suspect]
     Active Substance: ABEMACICLIB
     Indication: Breast cancer female
     Dosage: FREQUENCY : TWICE A DAY;?
     Route: 048
  3. ALENDRONATE [Concomitant]
  4. AMLODIPINE [Concomitant]
  5. ATORVASTATIN [Concomitant]
  6. AZITHROMYCIN [Concomitant]
  7. DOXYCYCLINE [Concomitant]
  8. ELIQUIS [Concomitant]
  9. GLIPIZIDE ER [Concomitant]
  10. METFORMIN [Concomitant]
  11. METOPROLOL [Concomitant]
     Active Substance: METOPROLOL
  12. OMEPRAZOLE [Concomitant]
  13. ONDANSETRON [Concomitant]
  14. OYSCO 500+D [Concomitant]
  15. PENNSAID [Concomitant]

REACTIONS (4)
  - Dermatitis allergic [None]
  - Malaise [None]
  - Peripheral swelling [None]
  - Hospice care [None]
